FAERS Safety Report 8373495-9 (Version None)
Quarter: 2012Q2

REPORT INFORMATION
  Report Type: 
  Country: None (occurrence: None)
  Receive Date: 20120521
  Receipt Date: 20110706
  Transmission Date: 20120825
  Serious: Yes (Hospitalization)
  Sender: FDA-Public Use
  Company Number: US-TEVA-2011003551

PATIENT
  Sex: Male

DRUGS (2)
  1. RITUXAN [Suspect]
     Indication: MANTLE CELL LYMPHOMA
  2. TREANDA [Suspect]
     Indication: MANTLE CELL LYMPHOMA
     Route: 042

REACTIONS (1)
  - MUCOSAL INFLAMMATION [None]
